FAERS Safety Report 7938265-1 (Version None)
Quarter: 2011Q4

REPORT INFORMATION
  Report Type: 
  Country: None (occurrence: None)
  Receive Date: 20111123
  Receipt Date: 20111122
  Transmission Date: 20120403
  Serious: Yes (Death, Other)
  Sender: FDA-Public Use
  Company Number: FR-B.I. PHARMACEUTICALS,INC./RIDGEFIELD-2011-FF-01079FF

PATIENT
  Sex: Male

DRUGS (9)
  1. PREVISCAN [Suspect]
     Indication: ATRIAL FIBRILLATION
     Dates: start: 20110902, end: 20110922
  2. SIMVASTATIN [Suspect]
     Dosage: 20 MG
     Route: 048
     Dates: end: 20110922
  3. BISOPROLOL FUMARATE [Suspect]
     Dosage: 5 MG
     Route: 048
     Dates: end: 20110922
  4. AMARYL [Suspect]
     Dosage: 3 MG
     Route: 048
     Dates: end: 20110922
  5. INSULIN [Suspect]
     Route: 058
  6. GONADORELIN INJ [Suspect]
     Route: 030
     Dates: end: 20110922
  7. XALATAN [Suspect]
     Route: 031
     Dates: end: 20110922
  8. EXFORGE [Suspect]
     Route: 048
     Dates: end: 20110922
  9. TAMSULOSIN HCL [Suspect]
     Dosage: 0.4 MG
     Route: 048
     Dates: end: 20110922

REACTIONS (6)
  - COMA [None]
  - ACUTE RESPIRATORY DISTRESS SYNDROME [None]
  - CEREBRAL HAEMATOMA [None]
  - HEMIPLEGIA [None]
  - PNEUMONIA ASPIRATION [None]
  - PULMONARY OEDEMA [None]
